FAERS Safety Report 14922759 (Version 1)
Quarter: 2018Q2

REPORT INFORMATION
  Report Type: Spontaneous
  Country: SE (occurrence: SE)
  Receive Date: 20180522
  Receipt Date: 20180522
  Transmission Date: 20180711
  Serious: Yes (Hospitalization)
  Sender: FDA-Public Use
  Company Number: SE-TEVA-2018-SE-894486

PATIENT
  Age: 74 Year
  Sex: Female

DRUGS (14)
  1. BETOLVEX [Concomitant]
     Active Substance: CYANOCOBALAMIN
     Route: 065
  2. METFORMIN [Suspect]
     Active Substance: METFORMIN HYDROCHLORIDE
     Dates: start: 20171120
  3. CANDESARSTAD [Concomitant]
     Route: 065
  4. CILAXORAL [Concomitant]
     Active Substance: SODIUM PICOSULFATE
     Route: 065
  5. BETAMETHASONE. [Concomitant]
     Active Substance: BETAMETHASONE
     Route: 065
  6. SIMVASTATIN. [Concomitant]
     Active Substance: SIMVASTATIN
     Route: 065
  7. ALVEDON [Concomitant]
     Active Substance: ACETAMINOPHEN
     Route: 065
  8. MOVICOL [Concomitant]
     Active Substance: POLYETHYLENE GLYCOL 3350\POTASSIUM CHLORIDE\SODIUM BICARBONATE\SODIUM CHLORIDE
     Route: 065
  9. FOLSYRA [Concomitant]
     Route: 065
  10. TROMBYL 75 MG TABLETT [Concomitant]
     Active Substance: ASPIRIN
  11. KALEORID [Concomitant]
     Active Substance: POTASSIUM CHLORIDE
     Route: 065
  12. METFORMIN [Suspect]
     Active Substance: METFORMIN HYDROCHLORIDE
     Dates: start: 201711
  13. OMEPRAZOLE. [Concomitant]
     Active Substance: OMEPRAZOLE
     Route: 065
  14. OXYNORM [Concomitant]
     Active Substance: OXYCODONE HYDROCHLORIDE
     Route: 065

REACTIONS (1)
  - Chest pain [Unknown]

NARRATIVE: CASE EVENT DATE: 20171119
